FAERS Safety Report 6915499-6 (Version None)
Quarter: 2010Q3

REPORT INFORMATION
  Report Type: 
  Country: None (occurrence: None)
  Receive Date: 20100804
  Receipt Date: 20100722
  Transmission Date: 20110219
  Serious: Yes (Other)
  Sender: FDA-Public Use
  Company Number: 7007232

PATIENT
  Age: 45 Year
  Sex: Male
  Weight: 72 kg

DRUGS (6)
  1. REBIF [Suspect]
     Indication: RELAPSING-REMITTING MULTIPLE SCLEROSIS
     Dosage: 44 MCG, 3 IN 1 WK, SUBCUTANEOUS
     Route: 058
     Dates: start: 20080716, end: 20100604
  2. KEPPRA [Concomitant]
  3. PRILOSEC (OMEPRAZOLE) [Concomitant]
  4. LEVOTHYROXINE SODIUM [Concomitant]
  5. AMANTADINE HCL [Concomitant]
  6. NUVIGIL [Concomitant]

REACTIONS (16)
  - ABDOMINAL DISCOMFORT [None]
  - ABDOMINAL PAIN [None]
  - ABDOMINAL PAIN UPPER [None]
  - AURA [None]
  - DRUG INEFFECTIVE [None]
  - FEELING ABNORMAL [None]
  - GRAND MAL CONVULSION [None]
  - HUNGER [None]
  - MEMORY IMPAIRMENT [None]
  - MICTURITION URGENCY [None]
  - MUSCLE SPASMS [None]
  - MUSCLE TIGHTNESS [None]
  - MUSCULOSKELETAL STIFFNESS [None]
  - POLYURIA [None]
  - URINARY INCONTINENCE [None]
  - WEIGHT DECREASED [None]
